FAERS Safety Report 8270712-0 (Version None)
Quarter: 2012Q2

REPORT INFORMATION
  Report Type: 
  Country: None (occurrence: None)
  Receive Date: 20120410
  Receipt Date: 20120326
  Transmission Date: 20120825
  Serious: Yes (Death, Hospitalization)
  Sender: FDA-Public Use
  Company Number: CR-ROCHE-1053285

PATIENT
  Sex: Male

DRUGS (1)
  1. MABTHERA [Suspect]
     Indication: NON-HODGKIN'S LYMPHOMA
     Route: 042
     Dates: start: 20111122, end: 20120225

REACTIONS (5)
  - HYPERGLYCAEMIA [None]
  - RESPIRATORY ARREST [None]
  - SHOCK [None]
  - HYPOTENSION [None]
  - COMA [None]
